FAERS Safety Report 24684477 (Version 1)
Quarter: 2024Q4

REPORT INFORMATION
  Report Type: Spontaneous
  Country: FR (occurrence: FR)
  Receive Date: 20241202
  Receipt Date: 20241202
  Transmission Date: 20250115
  Serious: Yes (Hospitalization)
  Sender: CHEPLAPHARM
  Company Number: None

PATIENT
  Age: 59 Year
  Sex: Female
  Weight: 74 kg

DRUGS (9)
  1. VALGANCICLOVIR [Suspect]
     Active Substance: VALGANCICLOVIR
     Indication: Antiviral prophylaxis
     Dosage: 5 MG/ML / 100 MG PER DAY?DAILY DOSE: 2 DOSAGE FORM
     Route: 048
     Dates: start: 20240321, end: 20240324
  2. CEFEPIME [Suspect]
     Active Substance: CEFEPIME HYDROCHLORIDE
     Indication: Antibiotic prophylaxis
  3. AMIKACIN [Suspect]
     Active Substance: AMIKACIN
     Indication: Antibiotic prophylaxis
  4. SIMULECT [Suspect]
     Active Substance: BASILIXIMAB
     Dosage: 20 MG ON D0 AND D3 (I.E. 03/16 AND 03/20),
     Dates: start: 20240316
  5. SIMULECT [Suspect]
     Active Substance: BASILIXIMAB
     Dosage: 20 MG ON D0 AND D3 (I.E. 03/16 AND 03/20),
     Dates: start: 20240320
  6. CELLCEPT [Suspect]
     Active Substance: MYCOPHENOLATE MOFETIL
     Dosage: 1000 MG X 2/DAY ?DAILY DOSE: 2000 MILLIGRAM
  7. CYCLOSPORINE [Suspect]
     Active Substance: CYCLOSPORINE
     Dosage: D3 1MG/KG
  8. PROPOFOL [Suspect]
     Active Substance: PROPOFOL
  9. MORPHINE [Suspect]
     Active Substance: MORPHINE
     Indication: Sedation
     Dosage: INFUSION OF 2 MG

REACTIONS (3)
  - Confusional state [Recovered/Resolved]
  - Hallucination, visual [Recovered/Resolved]
  - Overdose [Recovered/Resolved]

NARRATIVE: CASE EVENT DATE: 20240322
